FAERS Safety Report 8834608 (Version 1)
Quarter: 2012Q4

REPORT INFORMATION
  Report Type: Spontaneous
  Country: US (occurrence: None)
  Receive Date: 20120926
  Receipt Date: 20120926
  Transmission Date: 20130627
  Serious: Yes (Hospitalization)
  Sender: FDA-Public Use
  Company Number: 2012033400

PATIENT
  Age: 29 Month
  Sex: Male

DRUGS (1)
  1. DESMOPRESSIN ACETATE [Suspect]
     Indication: DIABETES INSIPIDUS

REACTIONS (9)
  - Drug effect decreased [None]
  - Unresponsive to stimuli [None]
  - Water intoxication [None]
  - Urinary incontinence [None]
  - Convulsion [None]
  - Eye movement disorder [None]
  - Vomiting [None]
  - Anxiety [None]
  - Stress [None]
